FAERS Safety Report 11699580 (Version 1)
Quarter: 2015Q4

REPORT INFORMATION
  Report Type: Spontaneous
  Country: JP (occurrence: JP)
  Receive Date: 20151105
  Receipt Date: 20151105
  Transmission Date: 20160304
  Serious: Yes (Other)
  Sender: FDA-Public Use
  Company Number: JP-AMGEN-JPNSP2015115618

PATIENT
  Sex: Female

DRUGS (1)
  1. ENBREL [Suspect]
     Active Substance: ETANERCEPT
     Indication: PRODUCT USED FOR UNKNOWN INDICATION
     Dosage: 25 MG, UNSPECIFIED FREQUENCY
     Route: 058
     Dates: end: 20151007

REACTIONS (3)
  - Cough [Unknown]
  - Pyrexia [Unknown]
  - Pneumonia [Unknown]

NARRATIVE: CASE EVENT DATE: 201510
